FAERS Safety Report 9208275 (Version 1)
Quarter: 2013Q2

REPORT INFORMATION
  Report Type: Spontaneous
  Country: US (occurrence: US)
  Receive Date: 20130403
  Receipt Date: 20130403
  Transmission Date: 20140414
  Serious: Yes (Other)
  Sender: FDA-Public Use
  Company Number: US-PFIZER INC-2013103814

PATIENT
  Age: 59 Year
  Sex: Female
  Weight: 90.7 kg

DRUGS (10)
  1. LYRICA [Suspect]
     Indication: SPINAL FRACTURE
     Dosage: 50 MG, 1X/DAY
     Dates: start: 201211
  2. LYRICA [Suspect]
     Dosage: 50 MG, 3X/DAY
  3. LYRICA [Suspect]
     Dosage: UNK
     Dates: end: 201303
  4. GABAPENTIN [Suspect]
     Indication: SPINAL FRACTURE
     Dosage: UNK
     Dates: end: 2012
  5. PRISTIQ [Suspect]
     Indication: DEPRESSION
     Dosage: UNK
     Route: 048
  6. XANAX [Suspect]
     Indication: DEPRESSION
     Dosage: UNK
     Route: 048
  7. XANAX [Suspect]
     Indication: ANXIETY
  8. XANAX [Suspect]
     Indication: PANIC ATTACK
  9. LASIX [Concomitant]
     Indication: POLYURIA
     Dosage: 40 MG, 1X/DAY
  10. LOSARTAN [Concomitant]
     Indication: HYPERTENSION
     Dosage: 50 MG, 1X/DAY

REACTIONS (14)
  - Myocardial infarction [Unknown]
  - Amnesia [Recovered/Resolved]
  - Drug ineffective [Unknown]
  - Anxiety [Not Recovered/Not Resolved]
  - Panic attack [Not Recovered/Not Resolved]
  - Dizziness [Not Recovered/Not Resolved]
  - Vision blurred [Not Recovered/Not Resolved]
  - Local swelling [Not Recovered/Not Resolved]
  - Disturbance in attention [Not Recovered/Not Resolved]
  - Euphoric mood [Not Recovered/Not Resolved]
  - Dyspnoea [Not Recovered/Not Resolved]
  - Weight increased [Not Recovered/Not Resolved]
  - Hypersensitivity [Unknown]
  - Chest pain [Unknown]
